FAERS Safety Report 22081751 (Version 1)
Quarter: 2023Q1

REPORT INFORMATION
  Report Type: Report from Study
  Country: US (occurrence: US)
  Receive Date: 20230310
  Receipt Date: 20230310
  Transmission Date: 20230417
  Serious: Yes (Other)
  Sender: FDA-Public Use
  Company Number: US-ABBVIE-4331943

PATIENT
  Sex: Male
  Weight: 99.34 kg

DRUGS (28)
  1. VENCLEXTA [Suspect]
     Active Substance: VENETOCLAX
     Indication: Myelodysplastic syndrome
     Dosage: 50MG DAILY X 7 DAYS, TAKE 1 TABLET BY MOUTH DAILY WITH BREAKFAST?FORM STRENGTH UNITS: 50 MILLIGRAM
     Route: 048
     Dates: start: 20230213
  2. VENCLEXTA [Suspect]
     Active Substance: VENETOCLAX
     Indication: Myelodysplastic syndrome
     Dosage: TAKE 1 TABLET BY MOUTH DAILY WITH BREAKFAST FOR 7 DAYS ON, 21 DAYS OFF EACH 28 DAY CYCLE
     Route: 048
  3. VENCLEXTA [Suspect]
     Active Substance: VENETOCLAX
     Indication: Myelodysplastic syndrome
     Dosage: TAKE 2 TABLET(S) BY MOUTH DAILY WITH BREAKFAST C1D12 OF AZA-VEN MAINTENANCE
     Route: 048
  4. JAKAFI [Concomitant]
     Active Substance: RUXOLITINIB
     Indication: Product used for unknown indication
     Dosage: FORM STRENGTH: 10 MILLIGRAM?TAKE 1 TABLET BY MOUTH 2 TIMES DAILY
     Route: 048
  5. VITAMIN B COMPLEX [Concomitant]
     Active Substance: CYANOCOBALAMIN\DEXPANTHENOL\NIACINAMIDE\PYRIDOXINE HYDROCHLORIDE\RIBOFLAVIN 5^-PHOSPHATE SODIUM\THIA
     Indication: Product used for unknown indication
     Dosage: TAKE 1 TABLET MOUTH DAILY
     Route: 048
  6. POSACONAZOLE [Concomitant]
     Active Substance: POSACONAZOLE
     Indication: Product used for unknown indication
     Dosage: 100MG TABLET DR/EC?TAKE 3 TABLET BY MOUTH ONCE DAILY
     Route: 048
  7. TACROLIMUS [Concomitant]
     Active Substance: TACROLIMUS
     Indication: Product used for unknown indication
     Dosage: TAKE 0.5MG BY MOUTH TWICE DAILY
     Route: 048
  8. TACROLIMUS [Concomitant]
     Active Substance: TACROLIMUS
     Indication: Product used for unknown indication
     Dosage: 1MG/ML COMPOUNDED SUSPENSION?FORM STRENGTH UNITS: 0.8 MILLIGRAM?TAKE 0.8MLS BY MOUTH EVERY 12 HOURS
     Route: 048
  9. IRON [Concomitant]
     Active Substance: IRON
     Indication: Product used for unknown indication
     Route: 048
  10. LEVOFLOXACIN [Concomitant]
     Active Substance: LEVOFLOXACIN
     Indication: Neoplasm prophylaxis
     Dosage: 500MG TABLE?TAKE 1 TABLET MOUTH DAILY
     Route: 048
  11. ZOFRAN [Concomitant]
     Active Substance: ONDANSETRON HYDROCHLORIDE
     Indication: Product used for unknown indication
  12. VALTREX [Concomitant]
     Active Substance: VALACYCLOVIR HYDROCHLORIDE
     Indication: Product used for unknown indication
     Dosage: 500MG TABLET?TAKE 1 TABLET BY MOUTH 3 TIMES DAILY
     Route: 048
  13. Vit b12 b6 + folic acid [Concomitant]
     Indication: Product used for unknown indication
     Dosage: 2.5-25-2MG TABLET?TAKE 1 TABLET MOUTH DAILY
     Route: 048
  14. LEVAQUIN [Concomitant]
     Active Substance: LEVOFLOXACIN
     Indication: Neutrophil count abnormal
     Dosage: FORM STRENGTH: 500 MILLIGRAM
     Dates: start: 20230224
  15. FLOMAX [Concomitant]
     Active Substance: TAMSULOSIN HYDROCHLORIDE
     Indication: Product used for unknown indication
     Dosage: 0.4MG CAPSULE
  16. SODIUM CHLORIDE [Concomitant]
     Active Substance: SODIUM CHLORIDE
     Indication: Product used for unknown indication
     Dosage: 10ML FLUSH SYRINGE INTERCATHETER
     Dates: start: 20220318
  17. SODIUM CHLORIDE [Concomitant]
     Active Substance: SODIUM CHLORIDE
     Indication: Product used for unknown indication
     Dosage: 0.65 % AEROSOL SPRAY?2 SPRAY BY EACH NARE ROUTE EVERY 6 HOURS
  18. MAGNESIUM [Concomitant]
     Active Substance: MAGNESIUM
     Indication: Product used for unknown indication
     Dosage: TAKE BY MOUTH 2/3/2
     Route: 048
  19. AZACITIDINE [Concomitant]
     Active Substance: AZACITIDINE
     Indication: Product used for unknown indication
     Dosage: 50MG/M2X5 DAYS C1D12 OF AZA-VEN MAINTENANCE
  20. PANTOPRAZOLE [Concomitant]
     Active Substance: PANTOPRAZOLE
     Indication: Product used for unknown indication
     Dosage: FORM STRENGTH UNITS: 40 MILLIGRAM?TAKE 1 TABLET MOUTH DAILY
     Route: 048
  21. ACYCLOVIR [Concomitant]
     Active Substance: ACYCLOVIR
     Indication: Product used for unknown indication
     Dosage: 200MG ?TAKE 2 CAPSULE BY MOUTH 2 TIMES DAILY
     Route: 048
  22. ALLOPURINOL [Concomitant]
     Active Substance: ALLOPURINOL
     Indication: Product used for unknown indication
     Dosage: 300MG , TAKE 1 TABLET MOUTH DAILY
     Route: 048
  23. URSODIOL [Concomitant]
     Active Substance: URSODIOL
     Indication: Product used for unknown indication
     Dosage: TIME INTERVAL: 0.33333333 DAYS: 300MG CAPSULE?TAKE 1 BY MOUTH 3 TIMES DAILY WITH MEALS
     Route: 048
  24. PREDNISONE [Concomitant]
     Active Substance: PREDNISONE
     Indication: Product used for unknown indication
     Dosage: TAKE 1.5 TABLET MOUTH DAILY(PATIENT TAKING DIFFERENTLY: TAKE 5MG BY MOUTH EVERY OTHER DAY)
     Route: 048
     Dates: start: 202301
  25. BACTRIM DS [Concomitant]
     Active Substance: SULFAMETHOXAZOLE\TRIMETHOPRIM
     Indication: Product used for unknown indication
  26. FISH OIL [Concomitant]
     Active Substance: FISH OIL
     Indication: Product used for unknown indication
     Dosage: 1000MG (120MG-180MG)CAPSULE?TAKE 1 CAPSULE BY MOUTH 2 TIMES DAILY
     Route: 048
  27. NORVASC [Concomitant]
     Active Substance: AMLODIPINE BESYLATE
     Indication: Hypertension
     Dosage: TAKE 1 TABLET MOUTH DAILY
     Route: 048
  28. FLUCONAZOLE [Concomitant]
     Active Substance: FLUCONAZOLE
     Indication: Prophylaxis
     Dosage: 100MG TABLET?TAKE 4 TABLET MOUTH DAILY FOR 14 DAYS
     Route: 048

REACTIONS (14)
  - Neutropenia [Unknown]
  - Graft versus host disease [Recovered/Resolved]
  - Immunosuppression [Unknown]
  - Human herpesvirus 6 infection [Unknown]
  - Nocturia [Unknown]
  - Off label use [Unknown]
  - Dizziness [Unknown]
  - Acute kidney injury [Unknown]
  - Dyspnoea exertional [Unknown]
  - Dizziness [Unknown]
  - Nausea [Unknown]
  - Chronic kidney disease [Unknown]
  - Epstein-Barr viraemia [Unknown]
  - Cytomegalovirus viraemia [Unknown]
